FAERS Safety Report 7239568-9 (Version None)
Quarter: 2011Q1

REPORT INFORMATION
  Report Type: 
  Country: None (occurrence: None)
  Receive Date: 20110121
  Receipt Date: 20110118
  Transmission Date: 20110831
  Serious: No
  Sender: FDA-Public Use
  Company Number: US-B.I. PHARMACEUTICALS,INC./RIDGEFIELD-2011-BP-01416BP

PATIENT
  Sex: Male

DRUGS (2)
  1. WARFARIN SODIUM [Concomitant]
     Dates: end: 20110112
  2. PRADAXA [Suspect]
     Dates: start: 20110112, end: 20110113

REACTIONS (2)
  - INFLUENZA LIKE ILLNESS [None]
  - PAIN [None]
